FAERS Safety Report 17652510 (Version 1)
Quarter: 2020Q2

REPORT INFORMATION
  Report Type: Spontaneous
  Country: DK (occurrence: DK)
  Receive Date: 20200409
  Receipt Date: 20200409
  Transmission Date: 20200713
  Serious: Yes (Hospitalization)
  Sender: FDA-Public Use
  Company Number: DK-NOVOPROD-721222

PATIENT
  Age: 16 Year
  Sex: Female

DRUGS (2)
  1. ESTRADIOL. [Suspect]
     Active Substance: ESTRADIOL
     Indication: GONADAL DYSGENESIS
     Dosage: 2 MG, QD
     Route: 048
     Dates: start: 20191202
  2. CONCERTA [Interacting]
     Active Substance: METHYLPHENIDATE HYDROCHLORIDE
     Indication: ATTENTION DEFICIT HYPERACTIVITY DISORDER
     Dosage: 36 MG, QD
     Route: 048
     Dates: start: 20200120

REACTIONS (9)
  - Tunnel vision [Recovering/Resolving]
  - Hallucinations, mixed [Recovering/Resolving]
  - Fear of death [Recovering/Resolving]
  - Paranoia [Recovering/Resolving]
  - Derealisation [Recovering/Resolving]
  - Psychotic disorder [Recovering/Resolving]
  - Vision blurred [Recovering/Resolving]
  - Off label use [Unknown]
  - Drug interaction [Unknown]

NARRATIVE: CASE EVENT DATE: 20191202
